FAERS Safety Report 9825688 (Version 1)
Quarter: 2014Q1

REPORT INFORMATION
  Report Type: Spontaneous
  Country: US (occurrence: None)
  Receive Date: 20140115
  Receipt Date: 20140115
  Transmission Date: 20141002
  Serious: Yes (Other)
  Sender: FDA-Public Use
  Company Number: None

PATIENT
  Age: 67 Year
  Sex: Female
  Weight: 74.84 kg

DRUGS (1)
  1. DOXPIN [Suspect]
     Indication: SLEEP DISORDER
     Dates: start: 201302, end: 201312

REACTIONS (4)
  - Alopecia [None]
  - Condition aggravated [None]
  - Balance disorder [None]
  - Heart rate increased [None]
